FAERS Safety Report 5359419-7 (Version None)
Quarter: 2007Q2

REPORT INFORMATION
  Report Type: 
  Country: None (occurrence: None)
  Receive Date: 20070615
  Receipt Date: 20070605
  Transmission Date: 20071010
  Serious: Yes (Other)
  Sender: FDA-Public Use
  Company Number: CH-PFIZER INC-2007036170

PATIENT
  Age: 80 Year
  Sex: Female

DRUGS (2)
  1. LYRICA [Suspect]
     Indication: EPILEPSY
     Route: 048
  2. ANTIHYPERTENSIVES [Concomitant]

REACTIONS (4)
  - ANGER [None]
  - ARRHYTHMIA [None]
  - BLOOD PRESSURE INCREASED [None]
  - COORDINATION ABNORMAL [None]
